FAERS Safety Report 7532781-2 (Version None)
Quarter: 2011Q2

REPORT INFORMATION
  Report Type: 
  Country: None (occurrence: None)
  Receive Date: 20110608
  Receipt Date: 20110530
  Transmission Date: 20111010
  Serious: Yes (Other)
  Sender: FDA-Public Use
  Company Number: B0721446A

PATIENT

DRUGS (1)
  1. PAZOPANIB [Suspect]
     Indication: RENAL CELL CARCINOMA
     Dosage: 800MG PER DAY
     Dates: start: 20101220, end: 20110331

REACTIONS (4)
  - HAIR COLOUR CHANGES [None]
  - RASH [None]
  - ASTHENIA [None]
  - ANAEMIA [None]
